FAERS Safety Report 10081376 (Version 3)
Quarter: 2021Q1

REPORT INFORMATION
  Report Type: Spontaneous
  Country: US (occurrence: US)
  Receive Date: 20140416
  Receipt Date: 20210121
  Transmission Date: 20210419
  Serious: Yes (Other)
  Sender: FDA-Public Use
  Company Number: US-PFIZER INC-2014104879

PATIENT
  Age: 59 Year
  Sex: Female

DRUGS (1)
  1. ZOLOFT [Suspect]
     Active Substance: SERTRALINE HYDROCHLORIDE
     Dosage: UNK

REACTIONS (4)
  - Syncope [Unknown]
  - Anxiety [Unknown]
  - Drug hypersensitivity [Unknown]
  - Dizziness [Unknown]

NARRATIVE: CASE EVENT DATE: 20140331
